FAERS Safety Report 7878892-3 (Version None)
Quarter: 2011Q4

REPORT INFORMATION
  Report Type: 
  Country: None (occurrence: None)
  Receive Date: 20111021
  Receipt Date: 20110803
  Transmission Date: 20120403
  Serious: Yes (Other)
  Sender: FDA-Public Use
  Company Number: 2011SP036558

PATIENT
  Sex: Female

DRUGS (1)
  1. TEMODAR [Suspect]
     Indication: ASTROCYTOMA
     Dates: start: 20070101

REACTIONS (2)
  - PANCYTOPENIA [None]
  - LEUKAEMIA [None]
